FAERS Safety Report 8286448-6 (Version None)
Quarter: 2012Q2

REPORT INFORMATION
  Report Type: 
  Country: None (occurrence: None)
  Receive Date: 20120411
  Receipt Date: 20120411
  Transmission Date: 20120825
  Serious: No
  Sender: FDA-Public Use
  Company Number: None

PATIENT
  Age: 31 Year
  Sex: Male
  Weight: 77.1115 kg

DRUGS (2)
  1. PAROXETINE HCL [Suspect]
     Indication: MAJOR DEPRESSION
     Dosage: 20 MG DAILY ORAL
     Route: 048
     Dates: start: 20081201, end: 20090301
  2. PAROXETINE HCL [Suspect]
     Indication: BIPOLAR DISORDER
     Dosage: 20 MG DAILY ORAL
     Route: 048
     Dates: start: 20081201, end: 20090301

REACTIONS (14)
  - MALAISE [None]
  - GASTROENTERITIS VIRAL [None]
  - VERTIGO [None]
  - THINKING ABNORMAL [None]
  - AMNESIA [None]
  - DIZZINESS [None]
  - TINNITUS [None]
  - HYPOAESTHESIA [None]
  - ABNORMAL BEHAVIOUR [None]
  - OBSESSIVE THOUGHTS [None]
  - SEXUALLY INAPPROPRIATE BEHAVIOUR [None]
  - ABNORMAL DREAMS [None]
  - SEROTONIN SYNDROME [None]
  - IMPRISONMENT [None]
